FAERS Safety Report 19011019 (Version 1)
Quarter: 2021Q1

REPORT INFORMATION
  Report Type: Spontaneous
  Country: GB (occurrence: GB)
  Receive Date: 20210316
  Receipt Date: 20210316
  Transmission Date: 20210420
  Serious: Yes (Other)
  Sender: FDA-Public Use
  Company Number: GB-B.BRAUN MEDICAL INC.-2108026

PATIENT
  Sex: Female

DRUGS (4)
  1. EPIPEN [Concomitant]
     Active Substance: EPINEPHRINE
  2. PREDNISOLONE. [Concomitant]
     Active Substance: PREDNISOLONE
  3. TERBUTALINE SULFATE. [Concomitant]
     Active Substance: TERBUTALINE SULFATE
  4. ACETAMINOPHEN INJECTION 1,000 MG/100 ML (10 MG/ML) ? NDA 204957 [Suspect]
     Active Substance: ACETAMINOPHEN
     Route: 042

REACTIONS (2)
  - Jaundice [None]
  - Anaphylactic reaction [None]
